FAERS Safety Report 4560844-2 (Version None)
Quarter: 2005Q1

REPORT INFORMATION
  Report Type: 
  Country: None (occurrence: None)
  Receive Date: 20050121
  Receipt Date: 20050113
  Transmission Date: 20050727
  Serious: Yes (Other)
  Sender: FDA-Public Use
  Company Number: 2005-01-0956

PATIENT
  Age: 30 Year
  Sex: Female

DRUGS (3)
  1. INTRON A [Suspect]
     Indication: ESSENTIAL THROMBOCYTHAEMIA
     Dosage: 3 MIU TIW
     Dates: start: 19910101, end: 19950101
  2. INTRON A [Suspect]
     Indication: ESSENTIAL THROMBOCYTHAEMIA
     Dosage: 3 MIU TIW
     Dates: start: 19910101
  3. INTRON A [Suspect]
     Indication: ESSENTIAL THROMBOCYTHAEMIA
     Dosage: 3 MIU TIW
     Dates: start: 20000801

REACTIONS (2)
  - DRUG EXPOSURE DURING PREGNANCY [None]
  - INTRA-UTERINE DEATH [None]
